FAERS Safety Report 17197005 (Version 1)
Quarter: 2019Q4

REPORT INFORMATION
  Report Type: Spontaneous
  Country: US (occurrence: US)
  Receive Date: 20191224
  Receipt Date: 20191224
  Transmission Date: 20200122
  Serious: No
  Sender: FDA-Public Use
  Company Number: US-SA-2019SA356792

PATIENT
  Age: 69 Year
  Sex: Male

DRUGS (2)
  1. PRALUENT [Suspect]
     Active Substance: ALIROCUMAB
     Dosage: UNK UNK, QOW
     Route: 058
     Dates: start: 20170108
  2. PRALUENT [Suspect]
     Active Substance: ALIROCUMAB
     Dosage: UNK, Q3W
     Route: 058

REACTIONS (5)
  - Product use issue [Unknown]
  - Device issue [Unknown]
  - Injection site bruising [Unknown]
  - Product dose omission [Unknown]
  - Memory impairment [Unknown]
